FAERS Safety Report 5077674-8 (Version None)
Quarter: 2006Q3

REPORT INFORMATION
  Report Type: 
  Country: None (occurrence: None)
  Receive Date: 20060807
  Receipt Date: 20060725
  Transmission Date: 20061208
  Serious: Yes (Hospitalization)
  Sender: FDA-Public Use
  Company Number: US200603006273

PATIENT
  Age: 33 Year
  Sex: Female

DRUGS (3)
  1. HUMALOG [Suspect]
     Indication: DIABETES MELLITUS
     Dosage: UNK, AS NEEDED, SLIDING SCALE, UNK
     Route: 065
     Dates: start: 20060201
  2. HUMULIN N [Suspect]
     Indication: DIABETES MELLITUS
     Dates: start: 20010101
  3. ACTOS [Concomitant]

REACTIONS (17)
  - BLOOD GLUCOSE INCREASED [None]
  - DIARRHOEA [None]
  - DRUG INEFFECTIVE [None]
  - ERYTHEMA [None]
  - FATIGUE [None]
  - HYPERKERATOSIS [None]
  - INFLUENZA [None]
  - INSOMNIA [None]
  - MALAISE [None]
  - NAIL DISORDER [None]
  - OEDEMA PERIPHERAL [None]
  - PSORIASIS [None]
  - RASH PRURITIC [None]
  - SKIN EXFOLIATION [None]
  - TINEA PEDIS [None]
  - TREATMENT NONCOMPLIANCE [None]
  - VOMITING [None]
